FAERS Safety Report 22002459 (Version 1)
Quarter: 2023Q1

REPORT INFORMATION
  Report Type: Spontaneous
  Country: JP (occurrence: JP)
  Receive Date: 20230217
  Receipt Date: 20230217
  Transmission Date: 20230418
  Serious: Yes (Death, Hospitalization, Other)
  Sender: FDA-Public Use
  Company Number: JP-ONO-2023JP003645

PATIENT
  Age: 75 Year
  Sex: Male
  Weight: 51 kg

DRUGS (12)
  1. OPDIVO [Suspect]
     Active Substance: NIVOLUMAB
     Indication: Non-small cell lung cancer recurrent
     Dosage: 240 MG
     Route: 041
     Dates: start: 202205, end: 202207
  2. KEYTRUDA [Suspect]
     Active Substance: PEMBROLIZUMAB
     Indication: Non-small cell lung cancer recurrent
     Dosage: 200 MG
     Route: 041
     Dates: start: 202203, end: 202205
  3. TECENTRIQ [Suspect]
     Active Substance: ATEZOLIZUMAB
     Indication: Non-small cell lung cancer recurrent
     Dosage: 1200 MG
     Route: 041
     Dates: start: 202004, end: 202202
  4. VONOPRAZAN FUMARATE [Concomitant]
     Active Substance: VONOPRAZAN FUMARATE
     Indication: Product used for unknown indication
     Dosage: 10 MG
     Route: 048
     Dates: start: 20220402, end: 20221221
  5. LOXOPROFEN [Concomitant]
     Active Substance: LOXOPROFEN
     Indication: Product used for unknown indication
     Dosage: UNK
     Route: 048
     Dates: start: 20220402, end: 20221221
  6. CALONAL [Concomitant]
     Active Substance: ACETAMINOPHEN
     Indication: Product used for unknown indication
     Dosage: 500 MG
     Route: 048
     Dates: start: 20220402, end: 20221221
  7. HYDROMORPHONE HYDROCHLORIDE [Concomitant]
     Active Substance: HYDROMORPHONE HYDROCHLORIDE
     Indication: Product used for unknown indication
     Dosage: 2 MG
     Route: 048
     Dates: start: 20220607, end: 20221221
  8. HYDROMORPHONE HYDROCHLORIDE [Concomitant]
     Active Substance: HYDROMORPHONE HYDROCHLORIDE
     Indication: Product used for unknown indication
     Dosage: 1 MG
     Route: 048
     Dates: start: 20220607, end: 20221221
  9. SYMPROIC [Concomitant]
     Active Substance: NALDEMEDINE
     Indication: Product used for unknown indication
     Dosage: UNK
     Route: 048
     Dates: start: 20220607, end: 20221221
  10. NOVAMIN [Concomitant]
     Indication: Product used for unknown indication
     Dosage: UNK
     Route: 048
     Dates: start: 20220607, end: 20221221
  11. MAGNESIUM OXIDE [Concomitant]
     Active Substance: MAGNESIUM OXIDE
     Indication: Product used for unknown indication
     Dosage: 500 MG
     Route: 048
     Dates: start: 20220607, end: 20221221
  12. PREDONINE [Concomitant]
     Active Substance: PREDNISOLONE
     Indication: Product used for unknown indication
     Dosage: 30 MG
     Dates: start: 20220806, end: 20220812

REACTIONS (1)
  - Cholangitis sclerosing [Fatal]

NARRATIVE: CASE EVENT DATE: 20220823
